FAERS Safety Report 5643003-1 (Version None)
Quarter: 2008Q1

REPORT INFORMATION
  Report Type: 
  Country: None (occurrence: None)
  Receive Date: 20080228
  Receipt Date: 20080220
  Transmission Date: 20080703
  Serious: Yes (Hospitalization)
  Sender: FDA-Public Use
  Company Number: B0510014A

PATIENT
  Age: 84 Year
  Sex: Female

DRUGS (7)
  1. AUGMENTIN '125' [Suspect]
     Indication: UPPER RESPIRATORY TRACT INFECTION
     Dosage: 2G PER DAY
     Route: 048
     Dates: start: 20071212, end: 20071217
  2. LANSOPRAZOLE [Concomitant]
     Dosage: 15MG PER DAY
     Route: 048
  3. ASPIRIN [Concomitant]
  4. LASIX [Concomitant]
     Dosage: 25MG PER DAY
  5. ARVENUM [Concomitant]
  6. LOFTYL [Concomitant]
  7. NORVASC [Concomitant]

REACTIONS (4)
  - FILARIASIS [None]
  - PRURIGO [None]
  - SKIN MACERATION [None]
  - VASCULITIS [None]
